FAERS Safety Report 5146777-1 (Version None)
Quarter: 2006Q4

REPORT INFORMATION
  Report Type: 
  Country: None (occurrence: None)
  Receive Date: 20061107
  Receipt Date: 20061107
  Transmission Date: 20070319
  Serious: Yes (Hospitalization)
  Sender: FDA-Public Use
  Company Number: None

PATIENT
  Sex: Female
  Weight: 40.3 kg

DRUGS (1)
  1. KEPPRA [Suspect]
     Indication: EPILEPSY
     Dosage: 1 1/2 TABLETS BID PO
     Route: 048
     Dates: start: 20060523, end: 20061103

REACTIONS (2)
  - MOOD ALTERED [None]
  - OVERDOSE [None]
